FAERS Safety Report 10113003 (Version 2)
Quarter: 2015Q1

REPORT INFORMATION
  Report Type: Other
  Country: US (occurrence: US)
  Receive Date: 20140425
  Receipt Date: 20150206
  Transmission Date: 20150720
  Serious: Yes (Hospitalization, Other)
  Sender: FDA-Public Use
  Company Number: US-GSKPPD-2014GSK014380

PATIENT
  Age: 70 Year
  Sex: Female

DRUGS (5)
  1. AVANDIA [Suspect]
     Active Substance: ROSIGLITAZONE MALEATE
     Indication: DIABETES MELLITUS
     Dosage: DATES OF AVANDIA USE COULD NOT BE CONFIRMED IN RECORDS REVIEWED.
     Route: 048
  2. COREG [Concomitant]
     Active Substance: CARVEDILOL
  3. AMIODARONE [Concomitant]
     Active Substance: AMIODARONE
  4. LISINOPRIL. [Concomitant]
     Active Substance: LISINOPRIL
  5. AVANDAMET [Suspect]
     Active Substance: METFORMIN HYDROCHLORIDE\ROSIGLITAZONE MALEATE
     Indication: DIABETES MELLITUS
     Dosage: DATES OF AVANDAMET USE COULD NOT BE CONFIRMED IN RECORDS REVIEWED.

REACTIONS (4)
  - Cardiac arrest [Recovered/Resolved]
  - Myocardial infarction [Unknown]
  - Ischaemic cardiomyopathy [Recovered/Resolved]
  - Coronary artery disease [Recovered/Resolved]

NARRATIVE: CASE EVENT DATE: 20051110
